FAERS Safety Report 4808574-3 (Version None)
Quarter: 2005Q4

REPORT INFORMATION
  Report Type: 
  Country: None (occurrence: None)
  Receive Date: 20051025
  Receipt Date: 20051021
  Transmission Date: 20060501
  Serious: Yes (Hospitalization)
  Sender: FDA-Public Use
  Company Number: US-GLAXOSMITHKLINE-A0579191A

PATIENT
  Age: 17 Year
  Sex: Female

DRUGS (1)
  1. WELLBUTRIN [Suspect]
     Indication: DRUG USE FOR UNKNOWN INDICATION
     Dosage: 300MG SEE DOSAGE TEXT
     Route: 048
     Dates: start: 20050901, end: 20051019

REACTIONS (2)
  - COMA [None]
  - CONVULSION [None]
